FAERS Safety Report 25329788 (Version 1)
Quarter: 2025Q2

REPORT INFORMATION
  Report Type: Spontaneous
  Country: US (occurrence: US)
  Receive Date: 20250519
  Receipt Date: 20250519
  Transmission Date: 20250716
  Serious: Yes (Other)
  Sender: NEURELIS
  Company Number: US-NEURELIS-USNEU25000156

PATIENT

DRUGS (3)
  1. VALTOCO [Suspect]
     Active Substance: DIAZEPAM
     Indication: Epilepsy
     Route: 045
     Dates: start: 202309
  2. TOPAMAX [Concomitant]
     Active Substance: TOPIRAMATE
     Indication: Product used for unknown indication
  3. LEVETIRACETAM [Concomitant]
     Active Substance: LEVETIRACETAM
     Indication: Product used for unknown indication

REACTIONS (1)
  - Loss of consciousness [Unknown]

NARRATIVE: CASE EVENT DATE: 20250503
